FAERS Safety Report 7985930-6 (Version None)
Quarter: 2011Q4

REPORT INFORMATION
  Report Type: 
  Country: None (occurrence: None)
  Receive Date: 20111216
  Receipt Date: 20111215
  Transmission Date: 20120403
  Serious: Yes (Congenital Anomaly, Other)
  Sender: FDA-Public Use
  Company Number: US-ABBOTT-11P-163-0880829-00

PATIENT
  Sex: Female

DRUGS (3)
  1. KALETRA [Suspect]
     Indication: MATERNAL EXPOSURE TIMING UNSPECIFIED
     Route: 064
  2. LAMIVUDINE + ZIDOVUDINE [Suspect]
     Indication: MATERNAL EXPOSURE TIMING UNSPECIFIED
     Route: 064
  3. ZIDOVUDINE [Suspect]
     Indication: MATERNAL EXPOSURE TIMING UNSPECIFIED
     Route: 064

REACTIONS (10)
  - SINGLE UMBILICAL ARTERY [None]
  - CLEFT LIP AND PALATE [None]
  - POLYHYDRAMNIOS [None]
  - AORTIC STENOSIS [None]
  - CYTOGENETIC ABNORMALITY [None]
  - HEART DISEASE CONGENITAL [None]
  - CONGENITAL AORTIC ANOMALY [None]
  - FOETAL EXPOSURE DURING PREGNANCY [None]
  - VENTRICULAR SEPTAL DEFECT [None]
  - PERSISTENT LEFT SUPERIOR VENA CAVA [None]
